FAERS Safety Report 7617347-8 (Version None)
Quarter: 2011Q3

REPORT INFORMATION
  Report Type: 
  Country: None (occurrence: None)
  Receive Date: 20110718
  Receipt Date: 20110705
  Transmission Date: 20111222
  Serious: No
  Sender: FDA-Public Use
  Company Number: US-ROXANE LABORATORIES, INC.-2011-RO-00968RO

PATIENT
  Sex: Female
  Weight: 61 kg

DRUGS (1)
  1. LOSARTAN POTASSIUM [Suspect]
     Indication: HYPERTENSION
     Dosage: 25 MG
     Dates: start: 20110516, end: 20110628

REACTIONS (12)
  - ABDOMINAL PAIN UPPER [None]
  - DIZZINESS [None]
  - DYSPNOEA [None]
  - DRY MOUTH [None]
  - GINGIVAL PAIN [None]
  - LIP SWELLING [None]
  - LIP EXFOLIATION [None]
  - PHARYNGEAL OEDEMA [None]
  - TOOTHACHE [None]
  - GINGIVAL SWELLING [None]
  - BURNING SENSATION [None]
  - DYSPHAGIA [None]
